FAERS Safety Report 12460120 (Version 1)
Quarter: 2016Q2

REPORT INFORMATION
  Report Type: Spontaneous
  Country: GB (occurrence: GB)
  Receive Date: 20160613
  Receipt Date: 20160613
  Transmission Date: 20160815
  Serious: Yes (Hospitalization)
  Sender: FDA-Public Use
  Company Number: GB-PFIZER INC-2016290947

PATIENT
  Age: 82 Year
  Sex: Male

DRUGS (2)
  1. GLICLAZIDE GNR [Interacting]
     Active Substance: GLICLAZIDE
     Indication: TYPE 2 DIABETES MELLITUS
     Dosage: IN THE MORNING
     Route: 048
     Dates: end: 20160523
  2. FLUCONAZOLE. [Suspect]
     Active Substance: FLUCONAZOLE
     Indication: DIABETIC FOOT
     Dosage: 400 MG, 1X/DAY
     Route: 048
     Dates: start: 201604, end: 20160523

REACTIONS (2)
  - Potentiating drug interaction [Recovered/Resolved]
  - Hypoglycaemia [Recovered/Resolved]
